FAERS Safety Report 13627189 (Version 1)
Quarter: 2017Q2

REPORT INFORMATION
  Report Type: Spontaneous
  Country: US (occurrence: US)
  Receive Date: 20170608
  Receipt Date: 20170608
  Transmission Date: 20170830
  Serious: Yes (Other)
  Sender: FDA-Public Use
  Company Number: US-BRISTOL-MYERS SQUIBB COMPANY-BMS-2017-048927

PATIENT
  Sex: Male
  Weight: 154.2 kg

DRUGS (1)
  1. WARFARIN SODIUM. [Suspect]
     Active Substance: WARFARIN SODIUM
     Indication: PULMONARY EMBOLISM
     Dosage: 2 OR 3 MONTHS
     Route: 065

REACTIONS (3)
  - Haemorrhage urinary tract [Unknown]
  - Haematochezia [Unknown]
  - Haemorrhage [Unknown]
